FAERS Safety Report 8842797 (Version 1)
Quarter: 2012Q4

REPORT INFORMATION
  Report Type: 
  Country: PT (occurrence: PT)
  Receive Date: 20121016
  Receipt Date: 20121016
  Transmission Date: 20130627
  Serious: Yes (Other)
  Sender: FDA-Public Use
  Company Number: PT-BAYER-2012-107595

PATIENT
  Age: 27 Year
  Sex: Female

DRUGS (1)
  1. ULTRAVIST [Suspect]
     Indication: DIAGNOSTIC PROCEDURE
     Dosage: 769 mg, QD
     Route: 042
     Dates: start: 20120925, end: 20120925

REACTIONS (9)
  - Hypotension [Recovered/Resolved]
  - Presyncope [Recovered/Resolved]
  - Tremor [Recovered/Resolved]
  - Face oedema [Recovered/Resolved]
  - Rash papular [Recovered/Resolved]
  - Pruritus generalised [Recovered/Resolved]
  - Eyelid oedema [Recovered/Resolved]
  - Nasal obstruction [Recovered/Resolved]
  - Presyncope [Recovered/Resolved]
